FAERS Safety Report 7372790-X (Version None)
Quarter: 2011Q1

REPORT INFORMATION
  Report Type: 
  Country: None (occurrence: None)
  Receive Date: 20110315
  Receipt Date: 20110304
  Transmission Date: 20110831
  Serious: Yes (Other)
  Sender: FDA-Public Use
  Company Number: 028823

PATIENT
  Sex: Female

DRUGS (1)
  1. VIMPAT [Suspect]
     Indication: EPILEPSY

REACTIONS (1)
  - CEREBROVASCULAR ACCIDENT [None]
